FAERS Safety Report 9664754 (Version 1)
Quarter: 2013Q4

REPORT INFORMATION
  Report Type: Report from Study
  Country: US (occurrence: US)
  Receive Date: 20131101
  Receipt Date: 20131101
  Transmission Date: 20140711
  Serious: Yes (Other)
  Sender: FDA-Public Use
  Company Number: US-US-EMD SERONO, INC.-7246215

PATIENT
  Sex: Female
  Weight: 64 kg

DRUGS (9)
  1. SAIZEN [(SOMATROPIN (RDNA ORIGIN) FOR INJECTION)] [Suspect]
     Indication: GROWTH HORMONE DEFICIENCY
     Dates: start: 20121124
  2. SAIZEN [(SOMATROPIN (RDNA ORIGIN) FOR INJECTION)] [Suspect]
     Dates: start: 201301
  3. ACIPHEX [Concomitant]
     Indication: GASTROOESOPHAGEAL REFLUX DISEASE
     Route: 048
  4. ESTRADIOL [Concomitant]
     Indication: MENOPAUSE
     Route: 067
  5. VENTOLIN                           /00139501/ [Concomitant]
     Indication: ASTHMA
     Dosage: 1-2 PUFFS
     Route: 048
  6. NASONEX [Concomitant]
     Indication: ASTHMA
     Dosage: 2 SPRAYS DAILY
     Route: 045
  7. ZOLOFT                             /01011401/ [Concomitant]
     Indication: DEPRESSION
  8. ZOLOFT                             /01011401/ [Concomitant]
     Indication: ANXIETY
  9. FLOVENT [Concomitant]
     Indication: ASTHMA
     Dosage: 2 PUFFS TWICE A DAY
     Route: 048

REACTIONS (3)
  - Cervical spinal stenosis [Not Recovered/Not Resolved]
  - Joint dislocation [Not Recovered/Not Resolved]
  - Pain in extremity [Unknown]
